FAERS Safety Report 9095648 (Version 1)
Quarter: 2013Q1

REPORT INFORMATION
  Report Type: Spontaneous
  Country: ES (occurrence: ES)
  Receive Date: 20130219
  Receipt Date: 20130219
  Transmission Date: 20140127
  Serious: Yes (Hospitalization)
  Sender: FDA-Public Use
  Company Number: ES-PFIZER INC-2013061464

PATIENT
  Age: 80 Year
  Sex: Male

DRUGS (4)
  1. RAMIPRIL [Suspect]
     Indication: CARDIAC FAILURE
     Dosage: UNK
     Route: 048
     Dates: start: 20111018
  2. DILTIAZEM HCL [Interacting]
     Indication: CARDIAC FAILURE
     Dosage: UNK
     Route: 048
     Dates: start: 20111018, end: 20121016
  3. TRANXILIUM [Concomitant]
     Dosage: UNK
     Dates: start: 20111018
  4. ATORVASTATIN [Concomitant]
     Dosage: UNK
     Dates: start: 20111018

REACTIONS (2)
  - Drug interaction [Unknown]
  - Bradycardia [Recovered/Resolved]
